FAERS Safety Report 7817624-1 (Version None)
Quarter: 2011Q4

REPORT INFORMATION
  Report Type: 
  Country: None (occurrence: None)
  Receive Date: 20111017
  Receipt Date: 20111006
  Transmission Date: 20120403
  Serious: Yes (Hospitalization)
  Sender: FDA-Public Use
  Company Number: GB-JNJFOC-20111005488

PATIENT

DRUGS (1)
  1. XARELTO [Suspect]
     Indication: FOOT OPERATION
     Route: 065

REACTIONS (1)
  - DEEP VEIN THROMBOSIS [None]
